FAERS Safety Report 6347679-5 (Version None)
Quarter: 2009Q3

REPORT INFORMATION
  Report Type: 
  Country: None (occurrence: None)
  Receive Date: 20090910
  Receipt Date: 20090907
  Transmission Date: 20100115
  Serious: Yes (Death)
  Sender: FDA-Public Use
  Company Number: GB-WYE-G03776509

PATIENT
  Sex: Female

DRUGS (12)
  1. TYGACIL [Suspect]
     Indication: PERITONITIS
     Route: 042
     Dates: start: 20090514, end: 20090525
  2. TYGACIL [Suspect]
     Indication: BILIARY TRACT INFECTION BACTERIAL
  3. CEFTRIAXONE [Concomitant]
     Route: 048
     Dates: start: 20090524, end: 20090524
  4. ZYVOX [Concomitant]
     Route: 042
     Dates: start: 20090510, end: 20090514
  5. ZYVOX [Concomitant]
     Route: 042
     Dates: start: 20090519, end: 20090525
  6. FLUCONAZOLE [Concomitant]
     Route: 042
     Dates: start: 20090511, end: 20090514
  7. FLUCONAZOLE [Concomitant]
     Route: 042
     Dates: start: 20090515, end: 20090520
  8. FLUCONAZOLE [Concomitant]
     Route: 042
     Dates: start: 20090522, end: 20090525
  9. GENTAMICIN [Concomitant]
     Dosage: VARIABLE DOSING, OTHERWISE UNSPECIFIED
     Route: 042
     Dates: start: 20090515, end: 20090525
  10. METRONIDAZOLE [Concomitant]
     Route: 048
     Dates: start: 20090508, end: 20090514
  11. ACYCLOVIR [Concomitant]
     Route: 042
     Dates: start: 20090524, end: 20090525
  12. CIPROFLOXACIN HYDROCHLORIDE [Concomitant]
     Route: 042
     Dates: start: 20090510, end: 20090514

REACTIONS (5)
  - ABDOMINAL INFECTION [None]
  - BILIARY TRACT INFECTION BACTERIAL [None]
  - DRUG INEFFECTIVE [None]
  - ENTEROCOCCAL INFECTION [None]
  - ESCHERICHIA INFECTION [None]
